FAERS Safety Report 15100374 (Version 3)
Quarter: 2018Q3

REPORT INFORMATION
  Report Type: Spontaneous
  Country: US (occurrence: US)
  Receive Date: 20180703
  Receipt Date: 20180914
  Transmission Date: 20181010
  Serious: Yes (Other)
  Sender: FDA-Public Use
  Company Number: US-TEVA-2018-US-917860

PATIENT
  Age: 45 Year
  Sex: Male

DRUGS (1)
  1. QVAR [Suspect]
     Active Substance: BECLOMETHASONE DIPROPIONATE
     Indication: ASTHMA
     Route: 065
     Dates: start: 20180604, end: 20180607

REACTIONS (8)
  - Wrong technique in product usage process [Unknown]
  - Swelling [Unknown]
  - Hypoaesthesia oral [Unknown]
  - Incorrect dose administered [Unknown]
  - Stomatitis [Unknown]
  - Burn oral cavity [Unknown]
  - Burning sensation [Unknown]
  - Oral discomfort [Unknown]
